FAERS Safety Report 8579815-4 (Version None)
Quarter: 2012Q3

REPORT INFORMATION
  Report Type: 
  Country: None (occurrence: None)
  Receive Date: 20120808
  Receipt Date: 20120726
  Transmission Date: 20120928
  Serious: Yes (Hospitalization)
  Sender: FDA-Public Use
  Company Number: IT-ALEXION PHARMACEUTICALS INC.-A201201441

PATIENT
  Sex: Female

DRUGS (2)
  1. SOLIRIS [Suspect]
     Dosage: 1200 MG, Q2W
     Route: 042
     Dates: start: 20120525, end: 20120622
  2. SOLIRIS [Suspect]
     Indication: HAEMOLYTIC URAEMIC SYNDROME
     Dosage: 900 MG, QW
     Route: 042
     Dates: start: 20120427, end: 20120518

REACTIONS (3)
  - CHOLECYSTITIS [None]
  - PYREXIA [None]
  - CYTOMEGALOVIRUS INFECTION [None]
